FAERS Safety Report 8765964 (Version 3)
Quarter: 2012Q4

REPORT INFORMATION
  Report Type: 
  Country: DE (occurrence: NO)
  Receive Date: 20120904
  Receipt Date: 20121205
  Transmission Date: 20130627
  Serious: Yes (Other)
  Sender: FDA-Public Use
  Company Number: NO-ASTRAZENECA-2012SE61326

PATIENT
  Age: 55 Year
  Sex: Male

DRUGS (6)
  1. ESOMEPRAZOLE MAGNESIUM [Suspect]
     Indication: GASTROOESOPHAGEAL REFLUX DISEASE
     Route: 048
  2. LANSOPRAZOLE [Suspect]
     Indication: GASTROOESOPHAGEAL REFLUX DISEASE
  3. LISINOPRIL [Concomitant]
     Indication: HYPERTENSION
     Route: 005
  4. ACETYLSALICYLSYRE [Concomitant]
     Indication: HYPERTENSION
  5. AMLODIPINE [Concomitant]
     Indication: HYPERTENSION
  6. IRBESARTAN [Concomitant]
     Indication: HYPERTENSION

REACTIONS (5)
  - Neuroendocrine tumour [Recovered/Resolved]
  - Hypergastrinaemia [Unknown]
  - Hyperchlorhydria [Recovered/Resolved]
  - Enterochromaffin cell hyperplasia [Recovered/Resolved]
  - Carcinoid tumour of the stomach [Recovered/Resolved]
